FAERS Safety Report 11751584 (Version 1)
Quarter: 2015Q4

REPORT INFORMATION
  Report Type: Spontaneous
  Country: US (occurrence: None)
  Receive Date: 20151118
  Receipt Date: 20151118
  Transmission Date: 20160304
  Serious: No
  Sender: FDA-Public Use
  Company Number: US-MDT-ADR-2015-02184

PATIENT
  Age: 46 Year
  Sex: Female

DRUGS (2)
  1. BUPIVACAINE 2.5 MG/ML [Suspect]
     Active Substance: BUPIVACAINE
     Indication: PAIN
     Dosage: 0.3594 MG/DAY
  2. BACLOFEN INTRATHECAL 1600.0 MCG/ML [Suspect]
     Active Substance: BACLOFEN
     Indication: PAIN
     Dosage: 230 MCG/DAY

REACTIONS (3)
  - Muscle spasticity [None]
  - Muscle spasms [None]
  - Pain in extremity [None]
